FAERS Safety Report 24524301 (Version 1)
Quarter: 2024Q4

REPORT INFORMATION
  Report Type: Report from Study
  Country: NL (occurrence: NL)
  Receive Date: 20241018
  Receipt Date: 20241018
  Transmission Date: 20250114
  Serious: Yes (Death)
  Sender: ABBVIE
  Company Number: NL-ABBVIE-5969092

PATIENT
  Age: 74 Year
  Sex: Female

DRUGS (1)
  1. CARBIDOPA\LEVODOPA [Suspect]
     Active Substance: CARBIDOPA\LEVODOPA
     Indication: Parkinson^s disease
     Dosage: LAST DOSE ADMINISTERED 2024
     Route: 058
     Dates: start: 20240703

REACTIONS (1)
  - Death [Fatal]
